FAERS Safety Report 23226276 (Version 1)
Quarter: 2023Q4

REPORT INFORMATION
  Report Type: Spontaneous
  Country: BR (occurrence: BR)
  Receive Date: 20231124
  Receipt Date: 20231124
  Transmission Date: 20240110
  Serious: Yes (Death, Other)
  Sender: FDA-Public Use
  Company Number: BR-JNJFOC-20231162980

PATIENT
  Age: 65 Year
  Sex: Male

DRUGS (2)
  1. TECVAYLI [Suspect]
     Active Substance: TECLISTAMAB-CQYV
     Indication: Product used for unknown indication
     Dosage: ESCALATION DOSES
     Route: 065
  2. TECVAYLI [Suspect]
     Active Substance: TECLISTAMAB-CQYV
     Dosage: 1ST FULL DOSE
     Route: 065

REACTIONS (3)
  - Adverse event [Fatal]
  - Cytokine release syndrome [Unknown]
  - Infection [Unknown]
